FAERS Safety Report 7286268-5 (Version None)
Quarter: 2011Q1

REPORT INFORMATION
  Report Type: 
  Country: None (occurrence: None)
  Receive Date: 20110210
  Receipt Date: 20110204
  Transmission Date: 20110831
  Serious: Yes (Death, Disabling, Other)
  Sender: FDA-Public Use
  Company Number: PHHY2011JP10045

PATIENT
  Sex: Female
  Weight: 48 kg

DRUGS (7)
  1. LEUPLIN [Concomitant]
     Dosage: UNK
     Route: 058
     Dates: start: 20020502, end: 20040329
  2. AREDIA [Suspect]
     Indication: METASTASES TO BONE
     Dosage: 90 MG, UNK
     Dates: start: 20060216, end: 20061019
  3. TASUOMIN [Concomitant]
     Indication: METASTASIS
     Dosage: UNK
     Route: 048
     Dates: start: 20051215, end: 20061116
  4. ARIMIDEX [Concomitant]
     Dosage: 1 MG, UNK
     Route: 048
     Dates: start: 20040510, end: 20051215
  5. ZOMETA [Suspect]
     Indication: METASTASES TO BONE
     Dosage: 4 MG, UNK
     Dates: start: 20061116, end: 20071022
  6. XELODA [Concomitant]
     Indication: METASTASIS
     Dosage: 2400 MG, UNK
     Route: 048
     Dates: start: 20061116, end: 20071119
  7. FURTULON [Concomitant]
     Dosage: 600 MG, UNK
     Route: 048
     Dates: start: 20020502, end: 20040329

REACTIONS (6)
  - MALOCCLUSION [None]
  - OSTEONECROSIS OF JAW [None]
  - JAW FRACTURE [None]
  - NEOPLASM MALIGNANT [None]
  - GINGIVITIS [None]
  - INFECTION [None]
